FAERS Safety Report 4667266-4 (Version None)
Quarter: 2005Q2

REPORT INFORMATION
  Report Type: 
  Country: None (occurrence: None)
  Receive Date: 20050520
  Receipt Date: 20040901
  Transmission Date: 20051028
  Serious: Yes (Other)
  Sender: FDA-Public Use
  Company Number: PHEH2004US09517

PATIENT
  Age: 85 Year
  Sex: Female
  Weight: 56 kg

DRUGS (8)
  1. ZOMETA [Suspect]
     Indication: MULTIPLE MYELOMA
     Dosage: 4 MG EVERY 28 DAYS
     Route: 042
     Dates: start: 20020312, end: 20040810
  2. DECADRON [Concomitant]
     Indication: MULTIPLE MYELOMA
     Dosage: 4 MG 4 TIMES PER DAY
  3. MELPHALAN [Concomitant]
     Indication: MULTIPLE MYELOMA
  4. THALIDOMIDE [Concomitant]
     Indication: MULTIPLE MYELOMA
  5. NEXIUM [Concomitant]
  6. COUMADIN [Concomitant]
  7. DURAGESIC-100 [Concomitant]
  8. CATAPRES [Concomitant]

REACTIONS (4)
  - ALVEOLOPLASTY [None]
  - JAW DISORDER [None]
  - OSTEONECROSIS [None]
  - TOOTH EXTRACTION [None]
